FAERS Safety Report 7211369-7 (Version None)
Quarter: 2011Q1

REPORT INFORMATION
  Report Type: 
  Country: None (occurrence: None)
  Receive Date: 20110105
  Receipt Date: 20101231
  Transmission Date: 20110831
  Serious: Yes (Death)
  Sender: FDA-Public Use
  Company Number: US-EISAI INC.-E2020-08301-SPO-US

PATIENT
  Age: 78 Year
  Sex: Male

DRUGS (7)
  1. PREDNISONE [Suspect]
     Dosage: UNKNOWN
  2. ARICEPT [Suspect]
     Dosage: UNKNOWN
     Route: 048
  3. ZOLPIDEM [Suspect]
     Dosage: UNKNOWN
  4. CODEINE [Suspect]
     Dosage: UNKNOWN
     Route: 048
  5. CAFFEINE [Suspect]
     Dosage: UNKNOWN
  6. ALPRAZOLAM [Suspect]
     Dosage: UNKNOWN
  7. VENLAFAXINE [Suspect]

REACTIONS (3)
  - CARDIAC ARREST [None]
  - RESPIRATORY ARREST [None]
  - COMPLETED SUICIDE [None]
